FAERS Safety Report 5363482-7 (Version None)
Quarter: 2007Q2

REPORT INFORMATION
  Report Type: 
  Country: None (occurrence: None)
  Receive Date: 20070620
  Receipt Date: 20070613
  Transmission Date: 20071010
  Serious: Yes (Other)
  Sender: FDA-Public Use
  Company Number: DE-ROCHE-499640

PATIENT
  Age: 83 Year
  Sex: Male

DRUGS (1)
  1. XELODA [Suspect]
     Route: 048

REACTIONS (1)
  - RHABDOMYOLYSIS [None]
